FAERS Safety Report 9701899 (Version 1)
Quarter: 2013Q4

REPORT INFORMATION
  Report Type: Spontaneous
  Country: US (occurrence: None)
  Receive Date: 20131120
  Receipt Date: 20131120
  Transmission Date: 20140711
  Serious: No
  Sender: FDA-Public Use
  Company Number: None

PATIENT
  Age: 51 Year
  Sex: Male
  Weight: 83.2 kg

DRUGS (1)
  1. ASENAPINE [Suspect]
     Indication: SCHIZOAFFECTIVE DISORDER
     Route: 048
     Dates: start: 20130327, end: 20130903

REACTIONS (3)
  - Respiratory failure [None]
  - Pneumonia [None]
  - Cardiac failure congestive [None]
